FAERS Safety Report 15665343 (Version 1)
Quarter: 2018Q4

REPORT INFORMATION
  Report Type: Report from Study
  Country: US (occurrence: US)
  Receive Date: 20181128
  Receipt Date: 20181128
  Transmission Date: 20190205
  Serious: Yes (Other)
  Sender: FDA-Public Use
  Company Number: US-NALPROPION PHARMACEUTICALS INC.-2018-006035

PATIENT

DRUGS (1)
  1. CONTRAVE [Suspect]
     Active Substance: BUPROPION HYDROCHLORIDE\NALTREXONE HYDROCHLORIDE
     Indication: PRODUCT USED FOR UNKNOWN INDICATION
     Dosage: ONE TABLET AM, ONE TABLET PM
     Route: 048
     Dates: start: 201811

REACTIONS (3)
  - Back pain [Unknown]
  - Nephrolithiasis [Unknown]
  - Drug titration error [Unknown]

NARRATIVE: CASE EVENT DATE: 201811
